FAERS Safety Report 20710035 (Version 1)
Quarter: 2022Q2

REPORT INFORMATION
  Report Type: Spontaneous
  Country: CN (occurrence: CN)
  Receive Date: 20220414
  Receipt Date: 20220414
  Transmission Date: 20220721
  Serious: Yes (Disabling, Other)
  Sender: FDA-Public Use
  Company Number: CN-009507513-2204CHN003811

PATIENT
  Age: 77 Year
  Sex: Male
  Weight: 60 kg

DRUGS (7)
  1. CILASTATIN SODIUM\IMIPENEM [Suspect]
     Active Substance: CILASTATIN SODIUM\IMIPENEM
     Indication: Sepsis
     Dosage: 1 GRAM, Q12H
     Route: 041
     Dates: start: 20211215, end: 20211215
  2. CILASTATIN SODIUM\IMIPENEM [Suspect]
     Active Substance: CILASTATIN SODIUM\IMIPENEM
     Dosage: 1 GRAM, QID
     Route: 041
     Dates: start: 20211216, end: 20211224
  3. SODIUM CHLORIDE [Concomitant]
     Active Substance: SODIUM CHLORIDE
     Indication: Medication dilution
     Dosage: 50 MILLILITER, Q12H
     Route: 041
     Dates: start: 20211215, end: 20211215
  4. SODIUM CHLORIDE [Concomitant]
     Active Substance: SODIUM CHLORIDE
     Dosage: 50 MILLILITER, QID
     Route: 041
     Dates: start: 20211216, end: 20211224
  5. VANCOCIN [Concomitant]
     Active Substance: VANCOMYCIN HYDROCHLORIDE
     Indication: Sepsis
     Dosage: 1 G, Q12H
     Route: 041
     Dates: start: 20211216, end: 20211222
  6. DEXTROSE [Concomitant]
     Active Substance: DEXTROSE
     Indication: Medication dilution
     Dosage: 200 MILLILITER, Q12H
     Route: 041
     Dates: start: 20211216, end: 20211222
  7. PI NA PU [Concomitant]
     Indication: Sepsis
     Dosage: 200 MILLIGRAM, Q12H
     Route: 048
     Dates: start: 20211223, end: 20220106

REACTIONS (2)
  - Epilepsy [Recovering/Resolving]
  - Condition aggravated [Unknown]

NARRATIVE: CASE EVENT DATE: 20211224
